FAERS Safety Report 23452217 (Version 2)
Quarter: 2024Q1

REPORT INFORMATION
  Report Type: Spontaneous
  Country: US (occurrence: US)
  Receive Date: 20240129
  Receipt Date: 20240306
  Transmission Date: 20240410
  Serious: No
  Sender: FDA-Public Use
  Company Number: US-NEUROCRINE BIOSCIENCES INC.-2024NBI00478

PATIENT
  Age: 59 Year
  Sex: Female

DRUGS (4)
  1. INGREZZA [Suspect]
     Active Substance: VALBENAZINE
     Indication: Tardive dyskinesia
     Dosage: 40 MILLIGRAM, QD
     Route: 048
     Dates: start: 20240111, end: 20240117
  2. LITHIUM [Concomitant]
     Active Substance: LITHIUM
  3. CELECOXIB [Concomitant]
     Active Substance: CELECOXIB
  4. LOXAPINE [Concomitant]
     Active Substance: LOXAPINE

REACTIONS (2)
  - Mood altered [Recovered/Resolved]
  - Muscle spasms [Recovered/Resolved]

NARRATIVE: CASE EVENT DATE: 20240101
